FAERS Safety Report 9196739 (Version 2)
Quarter: 2013Q3

REPORT INFORMATION
  Report Type: Spontaneous
  Country: ES (occurrence: ES)
  Receive Date: 20130328
  Receipt Date: 20130805
  Transmission Date: 20140515
  Serious: Yes (Death)
  Sender: FDA-Public Use
  Company Number: ES-SANOFI-AVENTIS-2013SA029733

PATIENT
  Age: 73 Year
  Sex: Female

DRUGS (7)
  1. ARAVA [Suspect]
     Indication: RHEUMATOID ARTHRITIS
     Route: 048
     Dates: start: 20020717, end: 20020805
  2. DAONIL [Interacting]
     Indication: DIABETES MELLITUS
     Route: 048
  3. METHOTREXATE ^LEDERLE^ [Interacting]
     Indication: RHEUMATOID ARTHRITIS
     Route: 048
     Dates: start: 20020725, end: 20020801
  4. SERACTIL [Interacting]
     Indication: RHEUMATOID ARTHRITIS
     Route: 048
     Dates: start: 20020717, end: 20020805
  5. FIACIN [Interacting]
     Indication: RHEUMATOID ARTHRITIS
     Route: 054
     Dates: end: 20020805
  6. ZAMENE [Interacting]
     Indication: RHEUMATOID ARTHRITIS
     Route: 048
     Dates: start: 20020717, end: 20020815
  7. ANAGASTRA [Interacting]
     Indication: PEPTIC ULCER
     Route: 048
     Dates: start: 20020717, end: 20020815

REACTIONS (3)
  - Aplasia pure red cell [Fatal]
  - Drug interaction [Fatal]
  - Pancytopenia [Fatal]
